APPROVED DRUG PRODUCT: DOCETAXEL
Active Ingredient: DOCETAXEL
Strength: 120MG/6ML (20MG/ML)
Dosage Form/Route: INJECTABLE;INJECTION
Application: N022234 | Product #006
Applicant: HOSPIRA INC
Approved: Jun 23, 2016 | RLD: Yes | RS: No | Type: DISCN